FAERS Safety Report 5590716-6 (Version None)
Quarter: 2008Q1

REPORT INFORMATION
  Report Type: 
  Country: None (occurrence: None)
  Receive Date: 20080114
  Receipt Date: 20080104
  Transmission Date: 20080703
  Serious: Yes (Hospitalization, Other)
  Sender: FDA-Public Use
  Company Number: DE-PFIZER INC-2007098618

PATIENT
  Sex: Female
  Weight: 72 kg

DRUGS (5)
  1. SUTENT [Suspect]
     Indication: METASTATIC RENAL CELL CARCINOMA
     Dosage: DAILY DOSE:50MG
     Route: 048
  2. ASPIRIN [Concomitant]
     Dosage: DAILY DOSE:100MG
     Route: 048
  3. AMARYL [Concomitant]
     Dosage: DAILY DOSE:2MG
     Route: 048
  4. EUTHYROX [Concomitant]
     Route: 048
  5. L-THYROXIN [Concomitant]
     Dosage: TEXT:100 U

REACTIONS (2)
  - ENCOPRESIS [None]
  - LOSS OF CONSCIOUSNESS [None]
